FAERS Safety Report 18992128 (Version 2)
Quarter: 2021Q2

REPORT INFORMATION
  Report Type: Spontaneous
  Country: IN (occurrence: IN)
  Receive Date: 20210310
  Receipt Date: 20210624
  Transmission Date: 20210717
  Serious: Yes (Hospitalization)
  Sender: FDA-Public Use
  Company Number: IN-PFIZER INC-2021238729

PATIENT
  Age: 57 Year
  Sex: Female

DRUGS (2)
  1. SUTENT [Suspect]
     Active Substance: SUNITINIB MALATE
     Indication: METASTATIC RENAL CELL CARCINOMA
     Dosage: 37.5 MG, CYCLIC (ONCE A DAY, 2 WEEKS ON 1 WEEK OFF)
     Route: 048
     Dates: start: 20210302
  2. SUTENT [Suspect]
     Active Substance: SUNITINIB MALATE
     Dosage: 25 MG, CYCLIC (DAILY FOR 2 WEEKS ON AND 2 WEEK OFF)

REACTIONS (3)
  - Neoplasm progression [Unknown]
  - Lymphadenopathy [Unknown]
  - Weight decreased [Unknown]
